FAERS Safety Report 4422272-X (Version None)
Quarter: 2004Q3

REPORT INFORMATION
  Report Type: 
  Country: None (occurrence: None)
  Receive Date: 20040810
  Receipt Date: 20040806
  Transmission Date: 20050211
  Serious: Yes (Life-Threatening, Hospitalization)
  Sender: FDA-Public Use
  Company Number: US-BRISTOL-MYERS SQUIBB COMPANY-12663365

PATIENT
  Sex: Female

DRUGS (3)
  1. ERBITUX [Suspect]
     Indication: COLORECTAL CANCER
     Dosage: 1ST INFUSION
     Dates: start: 20040805, end: 20040805
  2. DEXAMETHASONE [Concomitant]
     Indication: PREMEDICATION
     Route: 042
     Dates: start: 20040805, end: 20040805
  3. ZOFRAN [Concomitant]
     Indication: PREMEDICATION
     Dates: start: 20040805, end: 20040805

REACTIONS (6)
  - CONFUSIONAL STATE [None]
  - CONVULSION [None]
  - FLUSHING [None]
  - RESPIRATORY ARREST [None]
  - STARING [None]
  - SYNCOPE [None]
